FAERS Safety Report 5143761-9 (Version None)
Quarter: 2006Q4

REPORT INFORMATION
  Report Type: 
  Country: None (occurrence: None)
  Receive Date: 20061106
  Receipt Date: 20061026
  Transmission Date: 20070319
  Serious: Yes (Other)
  Sender: FDA-Public Use
  Company Number: US-JNJFOC-20061006368

PATIENT
  Sex: Female
  Weight: 52.16 kg

DRUGS (4)
  1. INFLIXIMAB [Suspect]
     Indication: RHEUMATOID ARTHRITIS
     Route: 042
  2. SULINDAC [Concomitant]
  3. PROTONIX [Concomitant]
  4. ZYRTEC-D [Concomitant]

REACTIONS (3)
  - METASTASES TO LIVER [None]
  - PANCREATIC CARCINOMA [None]
  - PANCREATIC CARCINOMA METASTATIC [None]
